FAERS Safety Report 12531528 (Version 3)
Quarter: 2016Q3

REPORT INFORMATION
  Report Type: Spontaneous
  Country: US (occurrence: US)
  Receive Date: 20160706
  Receipt Date: 20160909
  Transmission Date: 20161109
  Serious: Yes (Hospitalization, Disabling, Other)
  Sender: FDA-Public Use
  Company Number: US-009507513-1607USA002157

PATIENT
  Age: 70 Year
  Sex: Female

DRUGS (7)
  1. XGEVA [Concomitant]
     Active Substance: DENOSUMAB
  2. TICE BCG [Suspect]
     Active Substance: BACILLUS CALMETTE-GUERIN SUBSTRAIN TICE LIVE ANTIGEN
     Indication: BLADDER TRANSITIONAL CELL CARCINOMA
     Dosage: UNK
     Route: 043
     Dates: start: 2016, end: 2016
  3. VESICARE [Concomitant]
     Active Substance: SOLIFENACIN SUCCINATE
     Dosage: 5 MG, DAILY
  4. VERAPAMIL [Concomitant]
     Active Substance: VERAPAMIL HYDROCHLORIDE
     Dosage: 180 MG, DAILY
  5. COZAAR [Concomitant]
     Active Substance: LOSARTAN POTASSIUM
     Dosage: 100 MG, DAILY
     Route: 048
  6. KEYTRUDA [Suspect]
     Active Substance: PEMBROLIZUMAB
     Indication: METASTATIC MALIGNANT MELANOMA
     Dosage: 157 (2/KG), Q3W
     Dates: start: 20160111, end: 20160503
  7. KEYTRUDA [Suspect]
     Active Substance: PEMBROLIZUMAB
     Dosage: 157 (2/KG), Q3W
     Dates: start: 20160524, end: 20160616

REACTIONS (12)
  - Visual impairment [Recovering/Resolving]
  - Cerebral disorder [Recovering/Resolving]
  - Inappropriate schedule of drug administration [Unknown]
  - Thinking abnormal [Recovering/Resolving]
  - Strabismus [Unknown]
  - Fatigue [Unknown]
  - Gait disturbance [Recovering/Resolving]
  - Amnesia [Recovering/Resolving]
  - Depression [Unknown]
  - Paraneoplastic syndrome [Recovering/Resolving]
  - Vision blurred [Unknown]
  - Disturbance in attention [Recovering/Resolving]

NARRATIVE: CASE EVENT DATE: 2016
